FAERS Safety Report 24595189 (Version 1)
Quarter: 2024Q4

REPORT INFORMATION
  Report Type: Spontaneous
  Country: HU (occurrence: HU)
  Receive Date: 20241108
  Receipt Date: 20241108
  Transmission Date: 20250115
  Serious: Yes (Other)
  Sender: BAUSCH AND LOMB
  Company Number: HU-BAUSCH-BL-2024-016517

PATIENT
  Age: 24 Year
  Sex: Male
  Weight: 71 kg

DRUGS (2)
  1. RIFAXIMIN [Suspect]
     Active Substance: RIFAXIMIN
     Indication: Gastrointestinal microorganism overgrowth
     Route: 048
     Dates: start: 20241011
  2. SORBIFER DURULES [ASCORBIC ACID;FERROUS SULFATE] [Concomitant]
     Indication: Anaemia
     Dates: start: 2023

REACTIONS (4)
  - Pollakiuria [Not Recovered/Not Resolved]
  - Flatulence [Not Recovered/Not Resolved]
  - Abdominal distension [Not Recovered/Not Resolved]
  - Abdominal pain [Recovered/Resolved]

NARRATIVE: CASE EVENT DATE: 20241012
